FAERS Safety Report 23504700 (Version 1)
Quarter: 2024Q1

REPORT INFORMATION
  Report Type: Report from Study
  Country: BR (occurrence: BR)
  Receive Date: 20240209
  Receipt Date: 20240209
  Transmission Date: 20240409
  Serious: Yes (Hospitalization, Other)
  Sender: FDA-Public Use
  Company Number: BR-CELLTRION INC.-2023BR025542

PATIENT

DRUGS (10)
  1. INFLIXIMAB [Suspect]
     Active Substance: INFLIXIMAB
     Indication: Rheumatoid arthritis
     Dosage: 4 AMPOULES EVERY 2 MONTHS
     Route: 042
     Dates: start: 20221019
  2. INFLIXIMAB [Suspect]
     Active Substance: INFLIXIMAB
     Dosage: 4 AMPOULES EVERY 2 MONTHS
     Route: 042
     Dates: start: 20230417
  3. LEFLUNOMIDE [Concomitant]
     Active Substance: LEFLUNOMIDE
     Indication: Rheumatoid arthritis
     Dosage: 1 TABLET A DAY (10 YEARS)
     Route: 048
  4. ATENOLOL [Concomitant]
     Active Substance: ATENOLOL
     Indication: Hypertension
     Dosage: 1 TABLET A DAY (4 YEARS)
     Route: 048
  5. FUROSEMIDE [Concomitant]
     Active Substance: FUROSEMIDE
     Indication: Hypertension
     Dosage: 1 TABLET A DAY (20 YEARS)
     Route: 048
  6. SPIRONOLACTONE [Concomitant]
     Active Substance: SPIRONOLACTONE
     Indication: Product used for unknown indication
     Dosage: 1 TABLET A DAY (4 YEARS)
     Route: 048
  7. LEVOTHYROXINE [Concomitant]
     Active Substance: LEVOTHYROXINE\LEVOTHYROXINE SODIUM
     Indication: Hypothyroidism
     Dosage: 1 TABLET A DAY (4 YEARS)
     Route: 048
  8. KEFLEX [Concomitant]
     Active Substance: CEPHALEXIN
     Indication: Osteoporosis
     Dosage: 4 TABLET A WEEK (4 YEARS) / 4 TABLETS PER WEEK
     Route: 048
  9. CALCIUM\VITAMIN D [Concomitant]
     Active Substance: CALCIUM\VITAMIN D
     Indication: Supplementation therapy
     Dosage: 1 PILL A DAY (10 YEARS)
     Route: 048
  10. MILDE [Concomitant]
     Indication: Supplementation therapy
     Dosage: 5 DROPS A DAY (10 YEARS)
     Route: 048

REACTIONS (6)
  - Spinal fracture [Not Recovered/Not Resolved]
  - Kidney infection [Recovered/Resolved]
  - Cough [Unknown]
  - Ulcer [Unknown]
  - Influenza like illness [Unknown]
  - Intentional dose omission [Unknown]
